FAERS Safety Report 14892796 (Version 1)
Quarter: 2018Q2

REPORT INFORMATION
  Report Type: Spontaneous
  Country: NO (occurrence: NO)
  Receive Date: 20180514
  Receipt Date: 20180514
  Transmission Date: 20180711
  Serious: Yes (Death, Other)
  Sender: FDA-Public Use
  Company Number: NO-GLAXOSMITHKLINE-NO2018081877

PATIENT
  Age: 25 Year
  Sex: Male

DRUGS (16)
  1. FOSPHENYTOIN [Suspect]
     Active Substance: FOSPHENYTOIN\FOSPHENYTOIN SODIUM
     Dosage: UNK
     Route: 065
  2. REMIFENTANIL [Suspect]
     Active Substance: REMIFENTANIL
     Indication: STATUS EPILEPTICUS
     Dosage: UNK
     Route: 065
  3. METRONIDAZOLE. [Suspect]
     Active Substance: METRONIDAZOLE
     Indication: ANTIBIOTIC THERAPY
     Dosage: UNK
     Route: 065
  4. PROPOFOL. [Suspect]
     Active Substance: PROPOFOL
     Indication: STATUS EPILEPTICUS
     Dosage: 4.4-6.2 MG/(KG.H)
     Route: 065
  5. PROPOFOL. [Suspect]
     Active Substance: PROPOFOL
     Dosage: ICU DAY 3, REDUCED TO 2.3MG/(KG.H)
     Route: 065
  6. NOREPINEPHRINE. [Suspect]
     Active Substance: NOREPINEPHRINE
     Indication: PRODUCT USED FOR UNKNOWN INDICATION
     Dosage: 0.03 - 0.05 ?G/KG/MIN).
     Route: 065
  7. CEFUROXIME. [Suspect]
     Active Substance: CEFUROXIME
     Indication: ANTIBIOTIC THERAPY
     Dosage: UNK
     Route: 065
  8. DIAZEPAM. [Suspect]
     Active Substance: DIAZEPAM
     Indication: STATUS EPILEPTICUS
     Dosage: UNK
     Route: 042
  9. PROPOFOL. [Suspect]
     Active Substance: PROPOFOL
     Dosage: ICU DAY 1: 3.75-5MG/(KG.H)
     Route: 065
  10. FOSPHENYTOIN [Suspect]
     Active Substance: FOSPHENYTOIN\FOSPHENYTOIN SODIUM
     Indication: STATUS EPILEPTICUS
     Dosage: UNK
     Route: 065
  11. PROPOFOL. [Suspect]
     Active Substance: PROPOFOL
     Dosage: ICU DAY 2 : 5MG/(KG.H)UNK
     Route: 065
  12. MIDAZOLAM [Suspect]
     Active Substance: MIDAZOLAM HYDROCHLORIDE
     Indication: PRODUCT USED FOR UNKNOWN INDICATION
     Dosage: UNK
     Route: 065
  13. LEVETIRACETAM. [Suspect]
     Active Substance: LEVETIRACETAM
     Indication: STATUS EPILEPTICUS
     Dosage: ICU DAY 1
     Route: 065
  14. PENICILLIN [Suspect]
     Active Substance: PENICILLIN
     Indication: PNEUMONIA
     Dosage: UNK
     Route: 065
  15. FOSPHENYTOIN [Suspect]
     Active Substance: FOSPHENYTOIN\FOSPHENYTOIN SODIUM
     Dosage: UNKNOWN DOSE, INCREASED ON DAY 3  TO REACH THERAPEUTIC BLOOD LEVELS
     Route: 065
  16. PROPOFOL. [Suspect]
     Active Substance: PROPOFOL
     Dosage: ICU DAY 2 : 3.75MG/(KG.H)UNK
     Route: 065

REACTIONS (7)
  - Cardiac arrest [Fatal]
  - Hypotension [Unknown]
  - Bradycardia [Unknown]
  - Electrocardiogram QRS complex prolonged [Unknown]
  - Propofol infusion syndrome [Fatal]
  - Renal failure [Unknown]
  - Rhabdomyolysis [Unknown]
